FAERS Safety Report 5744567-X (Version None)
Quarter: 2008Q2

REPORT INFORMATION
  Report Type: 
  Country: None (occurrence: None)
  Receive Date: 20080520
  Receipt Date: 20080516
  Transmission Date: 20081010
  Serious: Yes (Congenital Anomaly)
  Sender: FDA-Public Use
  Company Number: IT-BOEHRINGER INGELHEIM GMBH, GERMANY-2008-DE-02017GD

PATIENT
  Sex: Female

DRUGS (2)
  1. TENOFOVIR [Suspect]
     Route: 064
  2. LAMIVUDINE [Suspect]
     Route: 064

REACTIONS (1)
  - PYELOCALIECTASIS [None]
